FAERS Safety Report 5897650-2 (Version None)
Quarter: 2008Q3

REPORT INFORMATION
  Report Type: 
  Country: None (occurrence: None)
  Receive Date: 20080925
  Receipt Date: 20080919
  Transmission Date: 20090109
  Serious: Yes (Life-Threatening, Hospitalization, Other)
  Sender: FDA-Public Use
  Company Number: CA-ASTRAZENECA-2008UW17780

PATIENT
  Age: 69 Year
  Sex: Female

DRUGS (3)
  1. ZD1839 [Suspect]
     Dosage: 250MG
     Route: 048
     Dates: start: 20060524
  2. NOLVADEX [Suspect]
     Dosage: 20MG
     Route: 048
     Dates: start: 20080524
  3. TYLENOL [Concomitant]
     Indication: SEASONAL ALLERGY
     Dates: start: 20010101

REACTIONS (1)
  - VENA CAVA INJURY [None]
